FAERS Safety Report 4627780-4 (Version None)
Quarter: 2005Q2

REPORT INFORMATION
  Report Type: 
  Country: None (occurrence: None)
  Receive Date: 20050401
  Receipt Date: 20050401
  Transmission Date: 20051028
  Serious: Yes (Death)
  Sender: FDA-Public Use
  Company Number: None

PATIENT
  Age: 45 Year
  Sex: Male

DRUGS (2)
  1. COLISTIN SULFATE [Suspect]
     Indication: ACINETOBACTER INFECTION
     Dosage: 150MG Q8 HOURS INTRAVENOUS
     Route: 042
     Dates: start: 20040918, end: 20040920
  2. COLISTIN SULFATE [Suspect]
     Indication: SEPSIS
     Dosage: 150MG Q8 HOURS INTRAVENOUS
     Route: 042
     Dates: start: 20040918, end: 20040920

REACTIONS (2)
  - BLOOD CREATININE INCREASED [None]
  - RENAL DISORDER [None]
